FAERS Safety Report 22009113 (Version 1)
Quarter: 2023Q1

REPORT INFORMATION
  Report Type: Spontaneous
  Country: FR (occurrence: FR)
  Receive Date: 20230220
  Receipt Date: 20230220
  Transmission Date: 20230417
  Serious: Yes (Other)
  Sender: FDA-Public Use
  Company Number: None

PATIENT
  Age: 47 Year
  Sex: Female

DRUGS (2)
  1. PHESGO [Suspect]
     Active Substance: HYALURONIDASE-ZZXF\PERTUZUMAB\TRASTUZUMAB
     Indication: Lobular breast carcinoma in situ
     Route: 065
     Dates: start: 202001, end: 202209
  2. TAXOTERE [Concomitant]
     Active Substance: DOCETAXEL
     Indication: Invasive lobular breast carcinoma
     Dates: start: 202212

REACTIONS (2)
  - Ventricular dysfunction [Recovering/Resolving]
  - Myocarditis [Recovering/Resolving]

NARRATIVE: CASE EVENT DATE: 20220901
